FAERS Safety Report 7563271-9 (Version None)
Quarter: 2011Q2

REPORT INFORMATION
  Report Type: 
  Country: None (occurrence: None)
  Receive Date: 20110615
  Receipt Date: 20110609
  Transmission Date: 20111010
  Serious: Yes (Hospitalization, Disabling, Other)
  Sender: FDA-Public Use
  Company Number: 2009SP023491

PATIENT
  Age: 21 Year
  Sex: Female
  Weight: 58.9676 kg

DRUGS (2)
  1. NUVARING [Suspect]
     Indication: CONTRACEPTION
     Dates: start: 20070901, end: 20080801
  2. COCAINE [Suspect]
     Indication: PRODUCT USED FOR UNKNOWN INDICATION

REACTIONS (24)
  - MULTIPLE INJURIES [None]
  - CERVICAL DYSPLASIA [None]
  - ALCOHOL USE [None]
  - VASCULITIS CEREBRAL [None]
  - LOSS OF CONSCIOUSNESS [None]
  - CONVULSION [None]
  - THROMBOSIS [None]
  - CEREBRAL INFARCTION [None]
  - HYPOXIC-ISCHAEMIC ENCEPHALOPATHY [None]
  - ATRIAL SEPTAL DEFECT ACQUIRED [None]
  - MIGRAINE [None]
  - TACHYCARDIA [None]
  - ENCEPHALOMALACIA [None]
  - INTRACRANIAL PRESSURE INCREASED [None]
  - BRAIN OEDEMA [None]
  - HEADACHE [None]
  - CEREBRAL ARTERIOVENOUS MALFORMATION HAEMORRHAGIC [None]
  - CHEST PAIN [None]
  - CEREBROVASCULAR DISORDER [None]
  - HAEMORRHAGE INTRACRANIAL [None]
  - CEREBRAL ARTERY EMBOLISM [None]
  - PAIN [None]
  - CEREBROVASCULAR ACCIDENT [None]
  - SUBDURAL HAEMATOMA [None]
